FAERS Safety Report 12897069 (Version 2)
Quarter: 2016Q4

REPORT INFORMATION
  Report Type: Spontaneous
  Country: CA (occurrence: CA)
  Receive Date: 20161031
  Receipt Date: 20161129
  Transmission Date: 20170207
  Serious: Yes (Other)
  Sender: FDA-Public Use
  Company Number: CA-WARNER CHILCOTT, LLC-1059052

PATIENT
  Age: 60 Year
  Sex: Female
  Weight: 38.09 kg

DRUGS (1)
  1. ACTONEL [Suspect]
     Active Substance: RISEDRONATE SODIUM
     Indication: BODY MASS INDEX DECREASED
     Route: 048
     Dates: start: 20150625, end: 201609

REACTIONS (10)
  - Tooth fracture [Unknown]
  - Tooth loss [Unknown]
  - Swelling [Unknown]
  - Dental caries [Unknown]
  - Dental alveolar anomaly [Unknown]
  - Bone loss [Unknown]
  - Osteonecrosis of jaw [Unknown]
  - Infection [Unknown]
  - Primary sequestrum [Unknown]
  - Gingival recession [Unknown]

NARRATIVE: CASE EVENT DATE: 201506
